FAERS Safety Report 5643109-7 (Version None)
Quarter: 2008Q1

REPORT INFORMATION
  Report Type: 
  Country: None (occurrence: None)
  Receive Date: 20080227
  Receipt Date: 20080227
  Transmission Date: 20080703
  Serious: Yes (Disabling)
  Sender: FDA-Public Use
  Company Number: None

PATIENT
  Age: 54 Year
  Sex: Female
  Weight: 50.8029 kg

DRUGS (2)
  1. ACTONEL [Suspect]
     Indication: OSTEOPOROSIS
     Dosage: NORMAL AI PO
     Route: 048
  2. FOSAMAX [Suspect]
     Indication: OSTEOPOROSIS
     Dosage: NORMAL AI PO .5 YEAR
     Route: 048

REACTIONS (6)
  - ABASIA [None]
  - ARTHRALGIA [None]
  - BONE PAIN [None]
  - MULTIPLE SCLEROSIS [None]
  - MYALGIA [None]
  - PAIN IN EXTREMITY [None]
